FAERS Safety Report 6687129-2 (Version None)
Quarter: 2010Q2

REPORT INFORMATION
  Report Type: 
  Country: None (occurrence: None)
  Receive Date: 20100419
  Receipt Date: 20100409
  Transmission Date: 20101027
  Serious: Yes (Other)
  Sender: FDA-Public Use
  Company Number: US-ROCHE-697718

PATIENT
  Age: 48 Year
  Sex: Male

DRUGS (2)
  1. PEGASYS [Suspect]
     Route: 058
     Dates: start: 20091101
  2. RIBAVIRIN [Suspect]
     Route: 048
     Dates: start: 20091101

REACTIONS (5)
  - ANAEMIA [None]
  - DYSPNOEA [None]
  - LYMPHADENOPATHY [None]
  - POSITRON EMISSION TOMOGRAM ABNORMAL [None]
  - THERAPEUTIC RESPONSE DECREASED [None]
